FAERS Safety Report 21974983 (Version 2)
Quarter: 2023Q2

REPORT INFORMATION
  Report Type: Spontaneous
  Country: US (occurrence: None)
  Receive Date: 20230209
  Receipt Date: 20230425
  Transmission Date: 20230722
  Serious: No
  Sender: FDA-Public Use
  Company Number: 2023A028647

PATIENT
  Age: 20628 Day
  Sex: Male
  Weight: 127 kg

DRUGS (1)
  1. BYDUREON BCISE [Suspect]
     Active Substance: EXENATIDE
     Indication: Type 2 diabetes mellitus
     Route: 058

REACTIONS (6)
  - Dysphonia [Recovered/Resolved]
  - Incorrect dose administered by device [Recovered/Resolved]
  - Extra dose administered [Unknown]
  - Wrong technique in device usage process [Unknown]
  - Needle issue [Unknown]
  - Device leakage [Unknown]

NARRATIVE: CASE EVENT DATE: 20230201
